FAERS Safety Report 22166512 (Version 1)
Quarter: 2023Q2

REPORT INFORMATION
  Report Type: Other
  Country: GB (occurrence: GB)
  Receive Date: 20230403
  Receipt Date: 20230403
  Transmission Date: 20230721
  Serious: Yes (Other)
  Sender: FDA-Public Use
  Company Number: GB-MHRA-MED-202303141802406350-TLFKN

PATIENT

DRUGS (2)
  1. TOPIRAMATE [Suspect]
     Active Substance: TOPIRAMATE
     Indication: Cluster headache
     Dosage: UNK
     Route: 065
     Dates: start: 20161001, end: 20220101
  2. BECLOMETHASONE DIPROPIONATE [Concomitant]
     Active Substance: BECLOMETHASONE DIPROPIONATE
     Indication: Asthma
     Dosage: UNK
     Route: 055
     Dates: start: 20150402

REACTIONS (6)
  - Haemorrhage subcutaneous [Unknown]
  - Skin injury [Recovered/Resolved]
  - Scar [Unknown]
  - Sensitive skin [Unknown]
  - Skin wound [Unknown]
  - Skin fragility [Unknown]

NARRATIVE: CASE EVENT DATE: 20190301
